FAERS Safety Report 5726755-1 (Version None)
Quarter: 2008Q2

REPORT INFORMATION
  Report Type: 
  Country: None (occurrence: None)
  Receive Date: 20080502
  Receipt Date: 20080423
  Transmission Date: 20081010
  Serious: Yes (Other)
  Sender: FDA-Public Use
  Company Number: US-PFIZER INC-2008004113

PATIENT
  Sex: Female

DRUGS (9)
  1. CELEBREX [Suspect]
     Indication: ARTHRITIS
  2. NEURONTIN [Suspect]
     Indication: FIBROMYALGIA
  3. NEURONTIN [Suspect]
     Indication: PAIN
  4. NEURONTIN [Suspect]
     Indication: CONVULSION
  5. NEURONTIN [Suspect]
     Indication: MOOD ALTERED
  6. GLUCOSAMINE WITH MSM [Concomitant]
  7. PAXIL CR [Concomitant]
     Route: 048
  8. LIBRAX [Concomitant]
     Route: 048
  9. WELLBUTRIN XL [Concomitant]
     Route: 048

REACTIONS (7)
  - ANAPHYLACTIC REACTION [None]
  - BALANCE DISORDER [None]
  - DISTURBANCE IN ATTENTION [None]
  - DRY MOUTH [None]
  - EATING DISORDER [None]
  - NAUSEA [None]
  - OEDEMA PERIPHERAL [None]
